FAERS Safety Report 14420308 (Version 1)
Quarter: 2018Q1

REPORT INFORMATION
  Report Type: Spontaneous
  Country: US (occurrence: US)
  Receive Date: 20180122
  Receipt Date: 20180122
  Transmission Date: 20180509
  Serious: No
  Sender: FDA-Public Use
  Company Number: US-ROCHE-1936140

PATIENT
  Sex: Male

DRUGS (1)
  1. RITUXAN [Suspect]
     Active Substance: RITUXIMAB
     Indication: GRANULOMATOSIS WITH POLYANGIITIS
     Dosage: FOR 4 WEEKS IN A ROW
     Route: 042
     Dates: start: 20170504

REACTIONS (3)
  - Flushing [Recovered/Resolved with Sequelae]
  - Throat irritation [Recovered/Resolved]
  - Throat clearing [Recovered/Resolved]

NARRATIVE: CASE EVENT DATE: 20170504
